FAERS Safety Report 7475825-9 (Version None)
Quarter: 2011Q2

REPORT INFORMATION
  Report Type: 
  Country: None (occurrence: None)
  Receive Date: 20110510
  Receipt Date: 20110510
  Transmission Date: 20111010
  Serious: No
  Sender: FDA-Public Use
  Company Number: None

PATIENT
  Age: 64 Year
  Sex: Female
  Weight: 55.3388 kg

DRUGS (2)
  1. ATENOLOL [Suspect]
     Indication: HYPERTENSION
     Dosage: TAKE 1 TABLET TWICE DAILY PO
     Route: 048
     Dates: start: 20110214, end: 20110502
  2. ATENOLOL [Suspect]
     Indication: TACHYCARDIA
     Dosage: TAKE 1 TABLET TWICE DAILY PO
     Route: 048
     Dates: start: 20110214, end: 20110502

REACTIONS (3)
  - HEART RATE INCREASED [None]
  - BLOOD PRESSURE INCREASED [None]
  - PRODUCT QUALITY ISSUE [None]
